FAERS Safety Report 22382958 (Version 1)
Quarter: 2023Q2

REPORT INFORMATION
  Report Type: Spontaneous
  Country: US (occurrence: US)
  Receive Date: 20230530
  Receipt Date: 20230530
  Transmission Date: 20230721
  Serious: No
  Sender: FDA-Public Use
  Company Number: US-BAYER-2023A065505

PATIENT
  Age: 64 Year
  Sex: Female

DRUGS (2)
  1. CLARITIN REDITABS [Suspect]
     Active Substance: LORATADINE
     Indication: Allergic respiratory symptom
     Dosage: 1 DF, QD
     Route: 048
     Dates: start: 20230509, end: 20230509
  2. CLARITIN REDITABS [Suspect]
     Active Substance: LORATADINE
     Indication: Nasopharyngitis

REACTIONS (4)
  - Oropharyngeal pain [Recovering/Resolving]
  - Dysphagia [Recovering/Resolving]
  - Dry throat [Recovering/Resolving]
  - Odynophagia [Recovering/Resolving]

NARRATIVE: CASE EVENT DATE: 20230510
